FAERS Safety Report 16719600 (Version 4)
Quarter: 2019Q3

REPORT INFORMATION
  Report Type: Spontaneous
  Country: US (occurrence: US)
  Receive Date: 20190820
  Receipt Date: 20190930
  Transmission Date: 20191005
  Serious: Yes (Other)
  Sender: FDA-Public Use
  Company Number: US-BTG-201900138

PATIENT
  Age: 27 Year
  Sex: Male
  Weight: 90 kg

DRUGS (6)
  1. VORAXAZE [Suspect]
     Active Substance: GLUCARPIDASE
     Indication: TOXICITY TO VARIOUS AGENTS
     Dosage: 50 U/KG
     Route: 065
     Dates: start: 20190722
  2. LEUCOVORIN. [Concomitant]
     Active Substance: LEUCOVORIN
     Indication: TOXICITY TO VARIOUS AGENTS
     Dosage: EVERY 6 HOURS ??????????
     Route: 065
     Dates: start: 20190718
  3. LEUCOVORIN. [Concomitant]
     Active Substance: LEUCOVORIN
     Indication: TOXICITY TO VARIOUS AGENTS
     Dosage: LEUCOVORIN DOSE WAS INCREASED
     Route: 065
     Dates: start: 20190718, end: 20190719
  4. METHOTREXATE. [Concomitant]
     Active Substance: METHOTREXATE
     Indication: PRODUCT USED FOR UNKNOWN INDICATION
     Route: 040
     Dates: start: 20190718, end: 20190719
  5. METHOTREXATE. [Concomitant]
     Active Substance: METHOTREXATE
     Indication: PRODUCT USED FOR UNKNOWN INDICATION
     Dosage: 6000MGIVMTXINFUSION(TOTAL14.5HOURSINFUSION.WAS SUPPOSEDTOGETTOTAL9450MGOVER23.5 HOURS)
     Route: 042
     Dates: start: 20190718, end: 20190719
  6. METHOTREXATE. [Concomitant]
     Active Substance: METHOTREXATE
     Indication: PRODUCT USED FOR UNKNOWN INDICATION
     Dosage: PATIENTRECEIVEDATLEAST2COURSESOFHD BETWEEN7/20AND7/28PERPAT
     Route: 065
     Dates: start: 20190720, end: 20190728

REACTIONS (3)
  - Drug ineffective [Unknown]
  - Rebound effect [Unknown]
  - Laboratory test interference [Unknown]

NARRATIVE: CASE EVENT DATE: 20190722
